FAERS Safety Report 8957343 (Version 1)
Quarter: 2012Q4

REPORT INFORMATION
  Report Type: 
  Country: DK (occurrence: FR)
  Receive Date: 20121210
  Receipt Date: 20121210
  Transmission Date: 20130627
  Serious: Yes (Other)
  Sender: FDA-Public Use
  Company Number: FR-FRI-1000040970

PATIENT
  Age: 50 Year
  Sex: Male

DRUGS (1)
  1. CITALOPRAM [Suspect]
     Indication: ANXIETY
     Dosage: 10 mg QOD
     Dates: start: 20110603

REACTIONS (1)
  - Osteitis deformans [Unknown]
